FAERS Safety Report 4294664-3 (Version None)
Quarter: 2004Q1

REPORT INFORMATION
  Report Type: 
  Country: None (occurrence: None)
  Receive Date: 20040213
  Receipt Date: 20040122
  Transmission Date: 20041129
  Serious: Yes (Death)
  Sender: FDA-Public Use
  Company Number: GB-GLAXOSMITHKLINE-B0320651A

PATIENT
  Age: 47 Year
  Sex: Female
  Weight: 70 kg

DRUGS (1)
  1. SEROXAT [Suspect]
     Dosage: 20MG SINGLE DOSE
     Route: 065
     Dates: start: 20030528, end: 20030528

REACTIONS (5)
  - AGITATION [None]
  - COMPLETED SUICIDE [None]
  - INJURY ASPHYXIATION [None]
  - INSOMNIA [None]
  - RESTLESSNESS [None]
